FAERS Safety Report 24314896 (Version 1)
Quarter: 2024Q3

REPORT INFORMATION
  Report Type: Report from Study
  Country: IN (occurrence: IN)
  Receive Date: 20240913
  Receipt Date: 20240913
  Transmission Date: 20241016
  Serious: Yes (Hospitalization)
  Sender: ROCHE
  Company Number: IN-ROCHE-10000073675

PATIENT
  Age: 64 Year
  Sex: Female
  Weight: 56.2 kg

DRUGS (1)
  1. POLIVY [Suspect]
     Active Substance: POLATUZUMAB VEDOTIN-PIIQ
     Indication: Diffuse large B-cell lymphoma
     Route: 042
     Dates: start: 20240622

REACTIONS (4)
  - Full blood count abnormal [Unknown]
  - Blood sodium abnormal [Unknown]
  - Electrolyte imbalance [Unknown]
  - Blood potassium decreased [Unknown]
